FAERS Safety Report 5179217-7 (Version None)
Quarter: 2006Q4

REPORT INFORMATION
  Report Type: 
  Country: None (occurrence: None)
  Receive Date: 20061219
  Receipt Date: 20061207
  Transmission Date: 20070319
  Serious: Yes (Other)
  Sender: FDA-Public Use
  Company Number: 2006SE06593

PATIENT
  Age: 81 Year
  Sex: Female
  Weight: 56 kg

DRUGS (7)
  1. AMIAS 8MG TABLETS [Suspect]
     Indication: HYPERTENSION
     Route: 048
     Dates: start: 20061120, end: 20061122
  2. ASPIRIN [Concomitant]
     Route: 048
     Dates: start: 20020816
  3. ATENOLOL [Concomitant]
     Indication: HYPERTENSION
     Route: 048
     Dates: start: 20050905
  4. BENDROFLUAZIDE [Concomitant]
     Indication: HYPERTENSION
     Route: 048
     Dates: start: 20060213
  5. ACETAMINOPHEN [Concomitant]
     Route: 065
  6. PRAVASTATIN [Concomitant]
     Indication: BLOOD CHOLESTEROL INCREASED
     Route: 048
     Dates: start: 20020919
  7. RAMIPRIL [Concomitant]
     Indication: HYPERTENSION
     Route: 048
     Dates: start: 20050905

REACTIONS (1)
  - LIP SWELLING [None]
